FAERS Safety Report 26101484 (Version 1)
Quarter: 2025Q4

REPORT INFORMATION
  Report Type: Spontaneous
  Country: EU (occurrence: EU)
  Receive Date: 20251128
  Receipt Date: 20251128
  Transmission Date: 20260117
  Serious: Yes (Hospitalization)
  Sender: RANBAXY
  Company Number: EU-SUN PHARMACEUTICAL INDUSTRIES LTD-2025RR-537926

PATIENT
  Age: 66 Year
  Sex: Male

DRUGS (1)
  1. CLOPIDOGREL [Suspect]
     Active Substance: CLOPIDOGREL BISULFATE
     Indication: Cardiovascular event prophylaxis
     Dosage: 75 MILLIGRAM, DAILY, 1CP/DAY
     Route: 065

REACTIONS (2)
  - Thrombocytopenia [Recovering/Resolving]
  - Haematuria [Recovering/Resolving]
